FAERS Safety Report 4951348-3 (Version None)
Quarter: 2006Q1

REPORT INFORMATION
  Report Type: 
  Country: None (occurrence: None)
  Receive Date: 20060317
  Receipt Date: 20060303
  Transmission Date: 20060701
  Serious: Yes (Death, Congenital Anomaly)
  Sender: FDA-Public Use
  Company Number: US200603001752

PATIENT
  Sex: Female

DRUGS (5)
  1. HUMULIN R [Suspect]
     Dosage: TRANSPLACENTAL
     Route: 064
  2. HUMULIN N [Suspect]
     Dosage: TRANSPLACENTAL
     Route: 064
  3. INSULIN [Suspect]
     Dosage: TRANSPLACENTAL
     Route: 064
  4. INSULIN [Suspect]
     Dosage: TRANSPLACENTAL
     Route: 064
  5. INSULIN [Suspect]
     Dosage: TRANSPLACENTAL
     Route: 064

REACTIONS (2)
  - DRUG EXPOSURE DURING PREGNANCY [None]
  - HEART DISEASE CONGENITAL [None]
